FAERS Safety Report 23694520 (Version 1)
Quarter: 2024Q2

REPORT INFORMATION
  Report Type: Report from Study
  Country: DK (occurrence: DK)
  Receive Date: 20240401
  Receipt Date: 20240401
  Transmission Date: 20240716
  Serious: Yes (Hospitalization)
  Sender: FDA-Public Use
  Company Number: DK-Stemline Therapeutics, Inc.-2024ST001351

PATIENT
  Age: 76 Year
  Sex: Male

DRUGS (23)
  1. DEXAMETHASONE [Suspect]
     Active Substance: DEXAMETHASONE
     Indication: Plasma cell myeloma
     Dosage: UNK
     Route: 065
  2. SELINEXOR [Suspect]
     Active Substance: SELINEXOR
     Indication: Plasma cell myeloma
     Dosage: 40 MG, CYCLE 3 DAY 9
     Route: 065
     Dates: start: 20231214, end: 20240215
  3. LENALIDOMIDE [Suspect]
     Active Substance: LENALIDOMIDE
     Indication: Plasma cell myeloma
     Dosage: UNK
     Route: 065
  4. UNIKALK FORTE [Concomitant]
     Indication: Product used for unknown indication
     Dosage: 1 PIECE (400 MG CA+19 MIKG D)
     Dates: start: 20231213
  5. ZOLEDRONIC ACID [Concomitant]
     Active Substance: ZOLEDRONIC ACID
     Indication: Product used for unknown indication
     Dosage: 4MG/5ML
     Dates: start: 20240208, end: 20240217
  6. ACYCLOVIR [Concomitant]
     Active Substance: ACYCLOVIR
     Indication: Product used for unknown indication
     Dosage: 1 TABLET
     Dates: start: 20240217
  7. ONDANSETRON STADA [Concomitant]
     Indication: Product used for unknown indication
     Dates: start: 20231213
  8. SODIUM BICARBONATE [Concomitant]
     Active Substance: SODIUM BICARBONATE
     Indication: Product used for unknown indication
     Dates: start: 20240217
  9. PARACETAMOL ORIFARM [Concomitant]
     Indication: Product used for unknown indication
     Dosage: 2 TABLETS
     Dates: start: 20231221
  10. PANTOPRAZOLE SODIUM [Concomitant]
     Active Substance: PANTOPRAZOLE SODIUM
     Indication: Product used for unknown indication
     Dates: start: 20231213
  11. PANTOPRAZOLE [Concomitant]
     Active Substance: PANTOPRAZOLE
     Indication: Product used for unknown indication
     Dates: start: 20230918
  12. BENDROFLUMETHIAZIDE\POTASSIUM CHLORIDE [Concomitant]
     Active Substance: BENDROFLUMETHIAZIDE\POTASSIUM CHLORIDE
     Indication: Product used for unknown indication
     Dosage: 2.5+537MG
     Dates: start: 20240215, end: 20240217
  13. SODIUM PICOSULFATE [Concomitant]
     Active Substance: SODIUM PICOSULFATE
     Indication: Product used for unknown indication
     Dates: start: 20240223
  14. METOCLOPRAMIDE [Concomitant]
     Active Substance: METOCLOPRAMIDE
     Indication: Product used for unknown indication
     Dosage: METOCLOPRAMIDE ^ORTFARM^
     Dates: start: 20240111
  15. TADALAFIL [Concomitant]
     Active Substance: TADALAFIL
     Indication: Product used for unknown indication
     Dates: start: 20211103
  16. ATORVASTATIN [Concomitant]
     Active Substance: ATORVASTATIN
     Indication: Product used for unknown indication
     Dates: start: 20240215, end: 20240217
  17. NITROLINGUAL [Concomitant]
     Active Substance: NITROGLYCERIN
     Indication: Product used for unknown indication
     Dates: start: 20240118
  18. EMEND [Concomitant]
     Active Substance: APREPITANT
     Indication: Product used for unknown indication
     Dates: start: 20231213
  19. EMEND [Concomitant]
     Active Substance: APREPITANT
     Dates: start: 20231213
  20. ASPIRIN [Concomitant]
     Active Substance: ASPIRIN
     Indication: Product used for unknown indication
     Dates: start: 20140303
  21. ENALAPRIL/HCT TEVA [Concomitant]
     Indication: Product used for unknown indication
     Dosage: 20+12.5MG
     Dates: start: 20230918, end: 20231215
  22. BORTEZOMIB [Concomitant]
     Active Substance: BORTEZOMIB
     Indication: Plasma cell myeloma
  23. AMLODIPINE BESYLATE [Concomitant]
     Active Substance: AMLODIPINE BESYLATE
     Indication: Product used for unknown indication
     Dates: start: 20231215

REACTIONS (2)
  - Blood creatinine increased [Recovering/Resolving]
  - Acute kidney injury [Unknown]

NARRATIVE: CASE EVENT DATE: 20240201
